FAERS Safety Report 4509416-6 (Version None)
Quarter: 2004Q4

REPORT INFORMATION
  Report Type: 
  Country: None (occurrence: None)
  Receive Date: 20041025
  Receipt Date: 20040713
  Transmission Date: 20050328
  Serious: Yes (Other)
  Sender: FDA-Public Use
  Company Number: US-JNJFOC-20040703421

PATIENT
  Age: 74 Year
  Sex: Female
  Weight: 61.2356 kg

DRUGS (5)
  1. REMICADE [Suspect]
     Indication: RHEUMATOID ARTHRITIS
     Dosage: INTRAVENOUS
     Route: 042
     Dates: start: 20040401
  2. NASAREL (FLUNISOLIDE) [Concomitant]
  3. METHOTREXATE [Concomitant]
  4. SERAVENT (SALMETEROL) [Concomitant]
  5. QUVAR (BECLOMETASONE DIPROPIONATE) [Concomitant]

REACTIONS (2)
  - MYOCARDIAL INFARCTION [None]
  - SINUSITIS [None]
